FAERS Safety Report 7475032-X (Version None)
Quarter: 2011Q1

REPORT INFORMATION
  Report Type: 
  Country: None (occurrence: None)
  Receive Date: 20110302
  Receipt Date: 20101102
  Transmission Date: 20110831
  Serious: Yes (Disabling, Other)
  Sender: FDA-Public Use
  Company Number: 163-21880-10090884

PATIENT
  Age: 76 Year
  Sex: Female

DRUGS (6)
  1. MORPHINE SULFATE INJ [Concomitant]
  2. REVLIMID [Suspect]
  3. HYDROCODONE (HYDROCODONE) [Concomitant]
  4. REVLIMID [Suspect]
     Indication: MULTIPLE MYELOMA
     Dosage: 2 MG, 1 IN 1 D, PO; 10 MG, 1 IN 1 D, PO; 5 MG, 1 IN 1 D, PO
     Route: 048
     Dates: start: 20090101
  5. REVLIMID [Suspect]
     Indication: MULTIPLE MYELOMA
     Dosage: 2 MG, 1 IN 1 D, PO; 10 MG, 1 IN 1 D, PO; 5 MG, 1 IN 1 D, PO
     Route: 048
     Dates: start: 20070601
  6. REVLIMID [Suspect]
     Indication: MULTIPLE MYELOMA
     Dosage: 2 MG, 1 IN 1 D, PO; 10 MG, 1 IN 1 D, PO; 5 MG, 1 IN 1 D, PO
     Route: 048
     Dates: start: 20070101

REACTIONS (2)
  - PATHOLOGICAL FRACTURE [None]
  - MULTIPLE MYELOMA [None]
